FAERS Safety Report 5085735-2 (Version None)
Quarter: 2006Q3

REPORT INFORMATION
  Report Type: 
  Country: None (occurrence: None)
  Receive Date: 20060817
  Receipt Date: 20060805
  Transmission Date: 20061208
  Serious: Yes (Other)
  Sender: FDA-Public Use
  Company Number: 2006083701

PATIENT
  Age: 17 Year
  Sex: Male

DRUGS (2)
  1. ZOLOFT [Suspect]
     Indication: DRUG USE FOR UNKNOWN INDICATION
  2. CHLOROQUINE PHOSPHATE [Suspect]
     Indication: DRUG USE FOR UNKNOWN INDICATION
     Dosage: 500 MG (1 WK)
     Dates: start: 20060101

REACTIONS (7)
  - DRUG INTERACTION [None]
  - EXCESSIVE EXERCISE [None]
  - FATIGUE [None]
  - HYPOGLYCAEMIA [None]
  - INADEQUATE DIET [None]
  - PANIC ATTACK [None]
  - SOMNOLENCE [None]
